FAERS Safety Report 17971514 (Version 2)
Quarter: 2020Q3

REPORT INFORMATION
  Report Type: Report from Study
  Country: CO (occurrence: CO)
  Receive Date: 20200702
  Receipt Date: 20200714
  Transmission Date: 20201103
  Serious: Yes (Hospitalization)
  Sender: FDA-Public Use
  Company Number: CO-SA-2020SA097708

PATIENT

DRUGS (6)
  1. CABAZITAXEL [Suspect]
     Active Substance: CABAZITAXEL
     Indication: HORMONE-REFRACTORY PROSTATE CANCER
     Dosage: 60 MG, QM
     Route: 042
     Dates: start: 20200624, end: 20200624
  2. CABAZITAXEL [Suspect]
     Active Substance: CABAZITAXEL
     Dosage: 60 MG, QM
     Route: 042
     Dates: start: 20191209, end: 20191209
  3. CABAZITAXEL [Suspect]
     Active Substance: CABAZITAXEL
     Dosage: 60 MG, QM
     Route: 042
     Dates: start: 20200422, end: 20200422
  4. CABAZITAXEL [Suspect]
     Active Substance: CABAZITAXEL
     Dosage: 60 MG, QM
     Route: 042
     Dates: start: 20200401, end: 20200401
  5. ATORVASTATIN [Concomitant]
     Active Substance: ATORVASTATIN
     Dosage: 20 MG, QD
  6. LOSARTAN. [Concomitant]
     Active Substance: LOSARTAN
     Indication: HYPERTENSION

REACTIONS (8)
  - Constipation [Recovering/Resolving]
  - Dyspnoea [Recovering/Resolving]
  - Vomiting [Recovering/Resolving]
  - Dizziness [Recovering/Resolving]
  - Pyrexia [Recovered/Resolved]
  - Malaise [Not Recovered/Not Resolved]
  - Asthenia [Recovering/Resolving]
  - Feeling cold [Recovering/Resolving]

NARRATIVE: CASE EVENT DATE: 20200402
